FAERS Safety Report 15117216 (Version 1)
Quarter: 2018Q3

REPORT INFORMATION
  Report Type: Spontaneous
  Country: FR (occurrence: FR)
  Receive Date: 20180706
  Receipt Date: 20180706
  Transmission Date: 20181010
  Serious: Yes (Hospitalization)
  Sender: FDA-Public Use
  Company Number: FR-B.I. PHARMACEUTICALS,INC./RIDGEFIELD-2018-12-002241

PATIENT
  Age: 69 Year
  Sex: Male
  Weight: 76 kg

DRUGS (1)
  1. ATROVENT [Suspect]
     Active Substance: IPRATROPIUM BROMIDE
     Indication: ASTHMA
     Route: 055
     Dates: start: 20180313, end: 20180314

REACTIONS (1)
  - Bladder dilatation [Recovered/Resolved]

NARRATIVE: CASE EVENT DATE: 20180314
